FAERS Safety Report 10474048 (Version 1)
Quarter: 2014Q3

REPORT INFORMATION
  Report Type: Spontaneous
  Country: GB (occurrence: GB)
  Receive Date: 20140924
  Receipt Date: 20140924
  Transmission Date: 20150326
  Serious: Yes (Hospitalization, Other)
  Sender: FDA-Public Use
  Company Number: GB-PFIZER INC-2014259379

PATIENT
  Age: 73 Year
  Sex: Male
  Weight: 113 kg

DRUGS (6)
  1. ASPIRIN. [Concomitant]
     Active Substance: ASPIRIN
     Dosage: 75 MG, 1X/DAY
     Route: 048
     Dates: start: 20131213
  2. FUROSEMIDE. [Concomitant]
     Active Substance: FUROSEMIDE
     Indication: DYSPNOEA
     Dosage: UNK
     Route: 048
     Dates: start: 2013, end: 20140303
  3. ROSUVASTATIN [Concomitant]
     Active Substance: ROSUVASTATIN
     Indication: HYPERLIPIDAEMIA
     Dosage: UNK
     Route: 048
  4. IMDUR [Concomitant]
     Active Substance: ISOSORBIDE MONONITRATE
     Indication: CORONARY ARTERY DISEASE
     Dosage: 30 MG, 1X/DAY
     Route: 048
     Dates: start: 20131213, end: 20140821
  5. BISOPROLOL [Concomitant]
     Active Substance: BISOPROLOL
     Indication: PRE-EXISTING DISEASE
     Dosage: 2.5 MG, 1X/DAY
     Route: 048
     Dates: start: 20131213
  6. CABERGOLINE. [Suspect]
     Active Substance: CABERGOLINE
     Indication: RESTLESS LEGS SYNDROME
     Dosage: 1 MG, 1X/DAY
     Route: 048
     Dates: start: 20020430, end: 20140818

REACTIONS (5)
  - Aortic stenosis [Recovered/Resolved]
  - Aortic valve calcification [Unknown]
  - Mitral valve disease [Unknown]
  - Tricuspid valve disease [Unknown]
  - Aortic valve incompetence [Unknown]

NARRATIVE: CASE EVENT DATE: 2012
